FAERS Safety Report 8537065 (Version 6)
Quarter: 2014Q1

REPORT INFORMATION
  Report Type: Spontaneous
  Country: US (occurrence: US)
  Receive Date: 20120430
  Receipt Date: 20140318
  Transmission Date: 20141002
  Serious: Yes (Hospitalization, Other)
  Sender: FDA-Public Use
  Company Number: US-ASTRAZENECA-2012SE15422

PATIENT
  Age: 70 Year
  Sex: Female
  Weight: 71.7 kg

DRUGS (19)
  1. CRESTOR [Suspect]
     Route: 048
  2. CRESTOR [Suspect]
     Route: 048
     Dates: start: 2011
  3. CRESTOR [Suspect]
     Route: 048
     Dates: start: 201309, end: 201311
  4. CRESTOR [Suspect]
     Route: 048
     Dates: start: 201311, end: 20131120
  5. CRESTOR [Suspect]
     Route: 048
     Dates: start: 20131121
  6. TOPROL XL [Suspect]
     Route: 048
  7. TOPROL XL [Suspect]
     Route: 048
  8. METOPROLOL [Suspect]
     Route: 065
  9. VIMOVO [Suspect]
     Route: 048
  10. LASIX [Concomitant]
  11. GLYBURIDE [Concomitant]
     Dosage: 6 DAILY
  12. METFORMIN [Concomitant]
  13. INSULIN [Concomitant]
     Dosage: 16 UNITS DAILY
  14. DIGOXIN [Concomitant]
     Indication: HEART RATE ABNORMAL
     Dosage: 0.125
  15. POTASSIUM [Concomitant]
  16. CARVEDILOL [Concomitant]
     Indication: BLOOD PRESSURE ABNORMAL
  17. HYDROCODONE [Concomitant]
  18. XANAX [Concomitant]
  19. PASCERONE [Concomitant]

REACTIONS (30)
  - Dehydration [Unknown]
  - Blood electrolytes abnormal [Unknown]
  - Diabetes mellitus inadequate control [Not Recovered/Not Resolved]
  - Thrombosis [Unknown]
  - Hyperhidrosis [Unknown]
  - Atrial fibrillation [Unknown]
  - Myocardial infarction [Recovered/Resolved]
  - Coronary artery occlusion [Recovered/Resolved]
  - Gait disturbance [Unknown]
  - Oedema peripheral [Unknown]
  - Dyspnoea [Recovered/Resolved]
  - Localised infection [Recovered/Resolved]
  - Blood glucose decreased [Unknown]
  - Malaise [Unknown]
  - Blood potassium increased [Unknown]
  - Heart rate irregular [Unknown]
  - Hypersomnia [Unknown]
  - Hypotension [Unknown]
  - Adverse drug reaction [Unknown]
  - Cough [Unknown]
  - Cardiac disorder [Unknown]
  - Blood cholesterol increased [Unknown]
  - Therapeutic response unexpected [Unknown]
  - Decreased appetite [Recovered/Resolved]
  - Fatigue [Not Recovered/Not Resolved]
  - Therapy cessation [Unknown]
  - Nausea [Recovered/Resolved]
  - Weight decreased [Recovered/Resolved]
  - Weight fluctuation [Unknown]
  - Off label use [Not Recovered/Not Resolved]
